FAERS Safety Report 7943401-7 (Version None)
Quarter: 2011Q4

REPORT INFORMATION
  Report Type: 
  Country: None (occurrence: None)
  Receive Date: 20111128
  Receipt Date: 20111116
  Transmission Date: 20120403
  Serious: Yes (Hospitalization)
  Sender: FDA-Public Use
  Company Number: US-ELI_LILLY_AND_COMPANY-US201110004665

PATIENT
  Sex: Female

DRUGS (24)
  1. OXYBUTYNIN [Concomitant]
  2. HYDROCODONE [Concomitant]
  3. IRON [Concomitant]
  4. ASPIRIN [Concomitant]
     Dosage: 81 MG, UNK
  5. ATROVENT [Concomitant]
  6. FENTANYL-100 [Concomitant]
     Dosage: 25 MG, UNK
  7. VALTREX [Concomitant]
  8. LYRICA [Concomitant]
  9. SOMA [Concomitant]
  10. REQUIP [Concomitant]
  11. MULTI-VITAMIN [Concomitant]
  12. ADVAIR DISKUS 100/50 [Concomitant]
  13. NEXIUM [Concomitant]
  14. MIRALAX [Concomitant]
  15. PREDNISONE TAB [Concomitant]
  16. CYMBALTA [Concomitant]
  17. CALCIUM [Concomitant]
  18. METHOTREXATE [Concomitant]
  19. TOPROL-XL [Concomitant]
  20. VITAMIN D [Concomitant]
  21. FORTEO [Suspect]
     Dosage: UNK
     Dates: start: 20111017, end: 20111104
  22. LEVOTHYROXINE SODIUM [Concomitant]
  23. FOLIC ACID [Concomitant]
  24. FORTEO [Suspect]
     Indication: OSTEOPOROSIS
     Dosage: 20 UG, QD
     Dates: start: 20110101, end: 20110926

REACTIONS (8)
  - HYPOPHAGIA [None]
  - MENTAL STATUS CHANGES [None]
  - OEDEMA PERIPHERAL [None]
  - DEHYDRATION [None]
  - HYPERTENSION [None]
  - MALAISE [None]
  - DIARRHOEA [None]
  - CONSTIPATION [None]
